FAERS Safety Report 9198830 (Version 1)
Quarter: 2013Q1

REPORT INFORMATION
  Report Type: Spontaneous
  Country: GB (occurrence: GB)
  Receive Date: 20130329
  Receipt Date: 20130329
  Transmission Date: 20140127
  Serious: Yes (Life-Threatening)
  Sender: FDA-Public Use
  Company Number: GB-009507513-1303GBR011830

PATIENT
  Age: 19 Year
  Sex: Female

DRUGS (14)
  1. CANCIDAS [Suspect]
     Dosage: 70 MG, QD
     Route: 042
  2. ACYCLOVIR [Suspect]
  3. ALLOPURINOL [Suspect]
     Dosage: 300 MG DAILY
     Route: 048
  4. CHLORPHENIRAMINE MALEATE [Suspect]
     Dosage: 10 MG, Q6H
     Route: 042
  5. CYCLOSPORINE [Suspect]
  6. ETOPOPHOS [Suspect]
     Dosage: 4650 MG, UNK
     Route: 042
     Dates: start: 20070915
  7. KETALAR [Suspect]
     Indication: PAIN
     Dosage: 6 ML, QH
     Route: 042
     Dates: start: 20070921, end: 20070928
  8. MORPHINE [Suspect]
     Route: 042
  9. NORETHINDRONE [Suspect]
     Dosage: 5 MG, UNK
     Route: 048
  10. OMEPRAZOLE [Suspect]
  11. ONDANSETRON HYDROCHLORIDE [Suspect]
     Dosage: 8 MG, TID
     Route: 042
  12. ACETAMINOPHEN [Suspect]
     Route: 042
  13. TAZOCIN [Suspect]
     Dosage: 4.5 MG, TID
     Route: 042
  14. VORICONAZOLE [Suspect]
     Dosage: 200 MG, BID
     Route: 048

REACTIONS (4)
  - Venoocclusive liver disease [Unknown]
  - Liver function test abnormal [Not Recovered/Not Resolved]
  - Hepatotoxicity [Unknown]
  - Dilatation intrahepatic duct acquired [Unknown]
